FAERS Safety Report 7824574-3 (Version None)
Quarter: 2011Q4

REPORT INFORMATION
  Report Type: 
  Country: None (occurrence: None)
  Receive Date: 20111019
  Receipt Date: 20111007
  Transmission Date: 20120403
  Serious: Yes (Other)
  Sender: FDA-Public Use
  Company Number: CA-ELI_LILLY_AND_COMPANY-CA201110001636

PATIENT
  Sex: Female

DRUGS (10)
  1. ZYPREXA [Suspect]
     Dosage: 7.5 MG, EACH EVENING
  2. CLONAZEPAM [Concomitant]
  3. ZYPREXA [Suspect]
     Indication: OBSESSIVE-COMPULSIVE DISORDER
     Dosage: 2.5 MG, QD
     Dates: start: 20031216, end: 20040308
  4. ZYPREXA [Suspect]
     Dosage: 5 MG, EACH EVENING
  5. PAXIL [Concomitant]
  6. SEROQUEL [Concomitant]
  7. RISPERDAL [Concomitant]
  8. ZYPREXA [Suspect]
     Dosage: 11.25 MG, UNK
  9. ZYPREXA [Suspect]
     Dosage: 15 MG, EACH EVENING
  10. LORAZEPAM [Concomitant]

REACTIONS (8)
  - HYPERLIPIDAEMIA [None]
  - ANAEMIA [None]
  - PANCREATITIS [None]
  - INTERVERTEBRAL DISC DEGENERATION [None]
  - OFF LABEL USE [None]
  - HYPERGLYCAEMIA [None]
  - BACK PAIN [None]
  - WEIGHT INCREASED [None]
